FAERS Safety Report 20462196 (Version 9)
Quarter: 2022Q3

REPORT INFORMATION
  Report Type: Report from Study
  Country: BR (occurrence: BR)
  Receive Date: 20220211
  Receipt Date: 20220813
  Transmission Date: 20221027
  Serious: Yes (Other)
  Sender: FDA-Public Use
  Company Number: BR-NOVARTISPH-NVSC2022BR027975

PATIENT
  Sex: Male

DRUGS (23)
  1. COSENTYX [Suspect]
     Active Substance: SECUKINUMAB
     Indication: Ankylosing spondylitis
     Dosage: UNK
     Route: 065
  2. COSENTYX [Suspect]
     Active Substance: SECUKINUMAB
     Indication: Psoriatic arthropathy
     Dosage: 2 DOSAGE FORM (2 INJECTIONS)
     Route: 065
  3. COSENTYX [Suspect]
     Active Substance: SECUKINUMAB
     Dosage: UNK (150 MG/ML)
     Route: 065
  4. COSENTYX [Suspect]
     Active Substance: SECUKINUMAB
     Dosage: UNK
     Route: 065
     Dates: start: 20220420
  5. COSENTYX [Suspect]
     Active Substance: SECUKINUMAB
     Dosage: UNK
     Route: 065
  6. COSENTYX [Suspect]
     Active Substance: SECUKINUMAB
     Dosage: UNK
     Route: 065
     Dates: start: 20220720
  7. COSENTYX [Suspect]
     Active Substance: SECUKINUMAB
     Dosage: 300 MG
     Route: 065
  8. COSENTYX [Suspect]
     Active Substance: SECUKINUMAB
     Dosage: 200 MG
     Route: 065
  9. LOSARTAN [Suspect]
     Active Substance: LOSARTAN
     Indication: Product used for unknown indication
     Dosage: 50 MG, QD
     Route: 065
  10. ATENOLOL [Suspect]
     Active Substance: ATENOLOL
     Indication: Product used for unknown indication
     Dosage: 50 MG, QD
     Route: 065
  11. METHOTREXATE [Suspect]
     Active Substance: METHOTREXATE
     Indication: Product used for unknown indication
     Dosage: 2.5 MG (6 PER WEEK)
     Route: 065
  12. PREGABALIN [Suspect]
     Active Substance: PREGABALIN
     Indication: Pain
     Dosage: 1 DOSAGE FORM, BID (MORNING AND NIGHT)
     Route: 065
  13. PREGABALIN [Suspect]
     Active Substance: PREGABALIN
     Dosage: 2 DOSAGE FORM, (TABLET) Q12H
     Route: 065
  14. PREGABALIN [Suspect]
     Active Substance: PREGABALIN
     Dosage: 1 DOSAGE FORM, (2 BOXES)
     Route: 065
  15. PREGABALIN [Suspect]
     Active Substance: PREGABALIN
     Dosage: UNK (4 TABLETS)
     Route: 065
  16. PREGABALIN [Suspect]
     Active Substance: PREGABALIN
     Dosage: UNK UNK, QD
     Route: 065
  17. CELECOXIB [Suspect]
     Active Substance: CELECOXIB
     Indication: Spondylitis
     Dosage: 1 DOSAGE FORM, (TABLET) Q12H
     Route: 065
  18. CELECOXIB [Suspect]
     Active Substance: CELECOXIB
     Dosage: 200 MG ( 2 BOXES)
     Route: 065
  19. CELECOXIB [Suspect]
     Active Substance: CELECOXIB
     Dosage: 200 MG (2 TABLETS)
     Route: 065
  20. CELECOXIB [Suspect]
     Active Substance: CELECOXIB
     Dosage: UNK (ABOUT 4 TO 5 MONTHS)
     Route: 065
  21. HYDROCHLOROTHIAZIDE [Concomitant]
     Active Substance: HYDROCHLOROTHIAZIDE
     Indication: Product used for unknown indication
     Dosage: 1 DOSAGE FORM, QD
     Route: 065
  22. CELECOXIB [Concomitant]
     Active Substance: CELECOXIB
     Indication: Spondylitis
     Route: 065
  23. TRAMADOL [Concomitant]
     Active Substance: TRAMADOL
     Indication: Product used for unknown indication
     Dosage: 50 MG, EVERY 8 HOURS
     Route: 065

REACTIONS (47)
  - Psoriatic arthropathy [Not Recovered/Not Resolved]
  - Arthritis [Recovering/Resolving]
  - Ankylosing spondylitis [Not Recovered/Not Resolved]
  - Choking [Not Recovered/Not Resolved]
  - Femur fracture [Unknown]
  - Decreased immune responsiveness [Unknown]
  - Peripheral swelling [Not Recovered/Not Resolved]
  - Cardiac disorder [Unknown]
  - Back pain [Not Recovered/Not Resolved]
  - Arthralgia [Not Recovered/Not Resolved]
  - Neck pain [Not Recovered/Not Resolved]
  - Pain [Recovering/Resolving]
  - COVID-19 [Recovered/Resolved]
  - Cough [Recovered/Resolved]
  - Fatigue [Unknown]
  - Wheezing [Not Recovered/Not Resolved]
  - Pain in extremity [Not Recovered/Not Resolved]
  - Depression [Not Recovered/Not Resolved]
  - Oropharyngeal discomfort [Recovered/Resolved]
  - Bone pain [Not Recovered/Not Resolved]
  - Oral pain [Unknown]
  - Lip injury [Unknown]
  - Gingival injury [Unknown]
  - Pelvic pain [Not Recovered/Not Resolved]
  - Burning sensation [Unknown]
  - Erythema [Recovering/Resolving]
  - Skin wound [Recovering/Resolving]
  - Skin haemorrhage [Unknown]
  - Skin swelling [Unknown]
  - Weight decreased [Unknown]
  - Spinal disorder [Not Recovered/Not Resolved]
  - Spinal pain [Not Recovered/Not Resolved]
  - Intervertebral disc protrusion [Not Recovered/Not Resolved]
  - Fractured coccyx [Not Recovered/Not Resolved]
  - Dandruff [Not Recovered/Not Resolved]
  - Movement disorder [Recovering/Resolving]
  - Gait disturbance [Unknown]
  - Asthenia [Recovering/Resolving]
  - Bone disorder [Unknown]
  - Inflammation [Unknown]
  - Joint swelling [Unknown]
  - Oesophagitis [Recovered/Resolved]
  - Headache [Recovered/Resolved]
  - Decreased appetite [Unknown]
  - COVID-19 [Unknown]
  - Fall [Unknown]
  - Product use issue [Unknown]

NARRATIVE: CASE EVENT DATE: 19970101
